FAERS Safety Report 6728070-6 (Version None)
Quarter: 2010Q2

REPORT INFORMATION
  Report Type: 
  Country: None (occurrence: None)
  Receive Date: 20100517
  Receipt Date: 20100204
  Transmission Date: 20101027
  Serious: Yes (Hospitalization)
  Sender: FDA-Public Use
  Company Number: US-ROCHE-703194

PATIENT
  Age: 63 Year
  Sex: Female

DRUGS (3)
  1. AVASTIN [Suspect]
     Dosage: FORM: IVT
     Route: 050
  2. BONIVA [Suspect]
     Indication: OSTEOPOROSIS
     Route: 048
  3. CALCIUM CARBONATE/VITAMIN D NOS [Concomitant]

REACTIONS (4)
  - BONE DENSITY ABNORMAL [None]
  - EYE PAIN [None]
  - FIBROMA [None]
  - HAEMATOMA [None]
